FAERS Safety Report 7798618-1 (Version None)
Quarter: 2011Q4

REPORT INFORMATION
  Report Type: 
  Country: None (occurrence: None)
  Receive Date: 20111005
  Receipt Date: 20110920
  Transmission Date: 20120403
  Serious: Yes (Death)
  Sender: FDA-Public Use
  Company Number: US-GILEAD-2011-0043764

PATIENT

DRUGS (3)
  1. LETAIRIS [Suspect]
     Indication: LIVER DISORDER
  2. REVATIO [Concomitant]
  3. LETAIRIS [Suspect]
     Indication: PULMONARY HYPERTENSION
     Route: 048
     Dates: start: 20080617, end: 20110810

REACTIONS (2)
  - PNEUMONIA [None]
  - SEPSIS [None]
